FAERS Safety Report 9064667 (Version 3)
Quarter: 2014Q1

REPORT INFORMATION
  Report Type: Spontaneous
  Country: US (occurrence: US)
  Receive Date: 20130214
  Receipt Date: 20140308
  Transmission Date: 20141002
  Serious: Yes (Other)
  Sender: FDA-Public Use
  Company Number: US-AMGEN-USASP2013009065

PATIENT
  Sex: Female

DRUGS (1)
  1. PROLIA [Suspect]
     Indication: OSTEOPENIA
     Dosage: UNK UNK, Q6MO
     Route: 065
     Dates: start: 201201

REACTIONS (11)
  - Spinal fracture [Unknown]
  - Spinal fusion acquired [Unknown]
  - Fractured coccyx [Unknown]
  - Rib fracture [Unknown]
  - Fall [Unknown]
  - Pneumonia [Unknown]
  - Back pain [Not Recovered/Not Resolved]
  - Visual impairment [Not Recovered/Not Resolved]
  - Photopsia [Recovered/Resolved]
  - Injection site pain [Recovered/Resolved]
  - Injection site bruising [Not Recovered/Not Resolved]
